FAERS Safety Report 21103341 (Version 2)
Quarter: 2022Q3

REPORT INFORMATION
  Report Type: Spontaneous
  Country: CA (occurrence: CA)
  Receive Date: 20220720
  Receipt Date: 20220912
  Transmission Date: 20221027
  Serious: Yes (Death, Other)
  Sender: FDA-Public Use
  Company Number: CA-SAMSUNG BIOEPIS-SB-2020-03467

PATIENT
  Age: 71 Year
  Sex: Male
  Weight: 87 kg

DRUGS (3)
  1. INFLIXIMAB [Suspect]
     Active Substance: INFLIXIMAB
     Indication: Crohn^s disease
     Route: 042
  2. BUDESONIDE [Concomitant]
     Active Substance: BUDESONIDE
     Indication: Crohn^s disease
     Route: 065
  3. METOPROLOL FUMARATE [Concomitant]
     Active Substance: METOPROLOL FUMARATE
     Indication: Product used for unknown indication
     Route: 065

REACTIONS (16)
  - Death [Fatal]
  - Asthenia [Fatal]
  - Condition aggravated [Fatal]
  - Abdominal discomfort [Fatal]
  - Appendix cancer [Fatal]
  - Arthralgia [Fatal]
  - Blood iron decreased [Fatal]
  - Blood pressure increased [Fatal]
  - Colon cancer [Fatal]
  - Faecal calprotectin increased [Fatal]
  - Haemoglobin decreased [Fatal]
  - Heart rate irregular [Fatal]
  - Weight fluctuation [Fatal]
  - Drug level below therapeutic [Fatal]
  - Off label use [Fatal]
  - Intentional product use issue [Fatal]
